FAERS Safety Report 8302275-5 (Version None)
Quarter: 2012Q2

REPORT INFORMATION
  Report Type: 
  Country: None (occurrence: None)
  Receive Date: 20120420
  Receipt Date: 20120411
  Transmission Date: 20120825
  Serious: Yes (Hospitalization)
  Sender: FDA-Public Use
  Company Number: FR-JNJFOC-20120208253

PATIENT
  Age: 54 Year
  Sex: Female

DRUGS (10)
  1. ENBREL [Suspect]
     Indication: ANKYLOSING SPONDYLITIS
     Dates: start: 20091001, end: 20100201
  2. NEFOPAM [Concomitant]
     Route: 048
  3. PREDNISONE TAB [Suspect]
     Indication: ANKYLOSING SPONDYLITIS
     Route: 048
  4. ERGOCALCIFEROL [Concomitant]
  5. SPAGLUMIC ACID [Concomitant]
  6. PREDNISONE TAB [Suspect]
     Route: 048
     Dates: start: 20090301
  7. ACETAMINOPHEN [Concomitant]
  8. REMICADE [Suspect]
     Indication: ANKYLOSING SPONDYLITIS
     Dosage: DOSE ALSO REPORTED AS 5 MG/KG FOR A TOTAL OF 7 INFUSIONS
     Route: 042
     Dates: start: 20100201, end: 20101001
  9. METHOTREXATE [Suspect]
     Indication: ANKYLOSING SPONDYLITIS
     Route: 048
     Dates: start: 20090301
  10. ESOMEPRAZOLE MAGNESIUM [Concomitant]

REACTIONS (1)
  - NEUROENDOCRINE CARCINOMA OF THE SKIN [None]
